FAERS Safety Report 5157170-X (Version None)
Quarter: 2006Q4

REPORT INFORMATION
  Report Type: 
  Country: None (occurrence: None)
  Receive Date: 20061127
  Receipt Date: 20060912
  Transmission Date: 20070319
  Serious: Yes (Hospitalization, Other)
  Sender: FDA-Public Use
  Company Number: US-ELI_LILLY_AND_COMPANY-US200609002897

PATIENT
  Age: 73 Year
  Sex: Female
  Weight: 50.34 kg

DRUGS (16)
  1. PREDNISONE TAB [Concomitant]
  2. ARAVA [Concomitant]
  3. DIOVAN [Concomitant]
  4. LEXAPRO                                 /USA/ [Concomitant]
  5. HUMIRA /USA/ [Concomitant]
  6. VERAPAMIL [Concomitant]
  7. CLONIDINE [Concomitant]
  8. ADVAIR DISKUS 100/50 [Concomitant]
  9. ATROVENT [Concomitant]
  10. ALBUTEROL [Concomitant]
  11. LORTAB [Concomitant]
  12. ZYRTEC [Concomitant]
  13. VANCERIL [Concomitant]
  14. ASPIRIN [Concomitant]
  15. FORTEO [Suspect]
     Indication: OSTEOPOROSIS
     Dates: start: 20060820
  16. FORTEO [Suspect]
     Dosage: 20 UG, DAILY (1/D)
     Dates: start: 20060201, end: 20060301

REACTIONS (12)
  - BLOOD PRESSURE DECREASED [None]
  - CONFUSIONAL STATE [None]
  - DEVICE RELATED INFECTION [None]
  - FEMUR FRACTURE [None]
  - HIP FRACTURE [None]
  - HYPOTENSION [None]
  - IMPAIRED HEALING [None]
  - INCISION SITE INFECTION [None]
  - PHARMACEUTICAL PRODUCT COMPLAINT [None]
  - PNEUMONIA [None]
  - PSYCHOTIC DISORDER [None]
  - WOUND INFECTION [None]
